FAERS Safety Report 20151256 (Version 1)
Quarter: 2021Q4

REPORT INFORMATION
  Report Type: Spontaneous
  Country: ES (occurrence: ES)
  Receive Date: 20211206
  Receipt Date: 20211206
  Transmission Date: 20220303
  Serious: Yes (Other)
  Sender: FDA-Public Use
  Company Number: ES-UCBSA-2021055339

PATIENT
  Age: 40 Year
  Sex: Male

DRUGS (2)
  1. LACOSAMIDE [Interacting]
     Active Substance: LACOSAMIDE
     Indication: Product used for unknown indication
     Dosage: 200 MG, QD
     Dates: start: 2019
  2. MAYZENT [Interacting]
     Active Substance: SIPONIMOD
     Indication: Secondary progressive multiple sclerosis
     Dosage: 1 MG, QD

REACTIONS (3)
  - Drug interaction [Unknown]
  - Lymphopenia [Unknown]
  - Product use issue [Unknown]
